FAERS Safety Report 9712464 (Version 1)
Quarter: 2013Q4

REPORT INFORMATION
  Report Type: Spontaneous
  Country: US (occurrence: US)
  Receive Date: 20131126
  Receipt Date: 20131126
  Transmission Date: 20140711
  Serious: No
  Sender: FDA-Public Use
  Company Number: US-BRISTOL-MYERS SQUIBB COMPANY-19181254

PATIENT
  Age: 63 Year
  Sex: Female
  Weight: 154.19 kg

DRUGS (2)
  1. BYDUREON [Suspect]
     Dosage: BYDUREON 2 MG ON 11JUL2013
     Route: 058
     Dates: start: 20130711
  2. GLIPIZIDE [Concomitant]

REACTIONS (2)
  - Injection site nodule [Not Recovered/Not Resolved]
  - Injection site pruritus [Unknown]
